FAERS Safety Report 8902122 (Version 3)
Quarter: 2013Q1

REPORT INFORMATION
  Report Type: Spontaneous
  Country: US (occurrence: US)
  Receive Date: 20121112
  Receipt Date: 20130208
  Transmission Date: 20140127
  Serious: No
  Sender: FDA-Public Use
  Company Number: US-ASTRAZENECA-2011SE07286

PATIENT
  Age: 84 Year
  Sex: Female
  Weight: 46.3 kg

DRUGS (12)
  1. SYMBICORT PMDI [Suspect]
     Indication: ASTHMA
     Dosage: 160 /4.5 MCG BID
     Route: 055
     Dates: start: 20110204
  2. SYMBICORT PMDI [Suspect]
     Indication: CHRONIC OBSTRUCTIVE PULMONARY DISEASE
     Dosage: 160 /4.5 MCG BID
     Route: 055
     Dates: start: 20110204
  3. SYMBICORT PMDI [Suspect]
     Indication: ASTHMA
     Dosage: 160 MCG TWO PUFFS BID
     Route: 055
  4. SYMBICORT PMDI [Suspect]
     Indication: CHRONIC OBSTRUCTIVE PULMONARY DISEASE
     Dosage: 160 MCG TWO PUFFS BID
     Route: 055
  5. SYMBICORT PMDI [Suspect]
     Indication: ASTHMA
     Dosage: 160/4.5, TWO PUFFS BID
     Route: 055
     Dates: start: 201201
  6. SYMBICORT PMDI [Suspect]
     Indication: CHRONIC OBSTRUCTIVE PULMONARY DISEASE
     Dosage: 160/4.5, TWO PUFFS BID
     Route: 055
     Dates: start: 201201
  7. METOPROLOL [Suspect]
     Indication: HYPERTENSION
     Route: 048
     Dates: start: 2011
  8. METOPROLOL [Suspect]
     Indication: HYPERTENSION
     Route: 048
     Dates: start: 2012
  9. LOVASTATIN [Concomitant]
     Indication: BLOOD CHOLESTEROL ABNORMAL
     Route: 048
     Dates: start: 2010
  10. ASPIRIN [Concomitant]
     Route: 048
  11. ASPIRIN [Concomitant]
     Route: 048
  12. SPIRIVA [Concomitant]
     Indication: CHRONIC OBSTRUCTIVE PULMONARY DISEASE
     Dosage: 1 PUFF DAILY
     Route: 055

REACTIONS (3)
  - Chronic obstructive pulmonary disease [Unknown]
  - Dysphonia [Unknown]
  - Pruritus [Unknown]
